FAERS Safety Report 24811485 (Version 1)
Quarter: 2025Q1

REPORT INFORMATION
  Report Type: Spontaneous
  Country: US (occurrence: US)
  Receive Date: 20250106
  Receipt Date: 20250106
  Transmission Date: 20250409
  Serious: Yes (Hospitalization)
  Sender: ELI LILLY AND COMPANY
  Company Number: US-ELI_LILLY_AND_COMPANY-US202412012803

PATIENT
  Age: 69 Year
  Sex: Female

DRUGS (3)
  1. MOUNJARO [Suspect]
     Active Substance: TIRZEPATIDE
     Indication: Product used for unknown indication
     Route: 065
  2. JARDIANCE [Suspect]
     Active Substance: EMPAGLIFLOZIN
     Indication: Diabetes mellitus
     Route: 065
  3. LANTUS [Concomitant]
     Active Substance: INSULIN GLARGINE
     Indication: Product used for unknown indication

REACTIONS (9)
  - Foot fracture [Not Recovered/Not Resolved]
  - Ulcer [Not Recovered/Not Resolved]
  - Genital infection fungal [Unknown]
  - Dysuria [Unknown]
  - Erythema [Unknown]
  - Sleep disorder due to general medical condition, insomnia type [Unknown]
  - Drug ineffective [Unknown]
  - Blood glucose increased [Unknown]
  - Pruritus [Unknown]

NARRATIVE: CASE EVENT DATE: 20240301
